FAERS Safety Report 13754533 (Version 1)
Quarter: 2017Q3

REPORT INFORMATION
  Report Type: Spontaneous
  Country: NL (occurrence: NL)
  Receive Date: 20170714
  Receipt Date: 20170714
  Transmission Date: 20171127
  Serious: Yes (Hospitalization)
  Sender: FDA-Public Use
  Company Number: NL-PFIZER INC-2017306284

PATIENT
  Age: 20 Month
  Sex: Female

DRUGS (2)
  1. FORLAX [Concomitant]
     Active Substance: POLYETHYLENE GLYCOL 4000
     Dosage: UNK
  2. AMIODARONE HCL [Suspect]
     Active Substance: AMIODARONE HYDROCHLORIDE
     Indication: SUPRAVENTRICULAR TACHYCARDIA
     Dosage: UNK (DOSAGE ADAPTED TO PARAMETERS AND WEIGHT STOP DOSE 1 DD 94MG)
     Route: 048
     Dates: start: 20150423, end: 201701

REACTIONS (3)
  - Pyrexia [Recovered/Resolved]
  - Oedema [Recovered/Resolved]
  - Cyanosis [Recovered/Resolved]

NARRATIVE: CASE EVENT DATE: 20150427
